FAERS Safety Report 7997645-9 (Version None)
Quarter: 2011Q4

REPORT INFORMATION
  Report Type: 
  Country: None (occurrence: None)
  Receive Date: 20111221
  Receipt Date: 20111216
  Transmission Date: 20120403
  Serious: Yes (Other)
  Sender: FDA-Public Use
  Company Number: DE-ALLERGAN-1112649US

PATIENT
  Age: 60 Year
  Sex: Female

DRUGS (1)
  1. OZURDEX [Suspect]
     Indication: RETINAL VEIN OCCLUSION
     Dosage: UNK
     Route: 031
     Dates: start: 20110801, end: 20110801

REACTIONS (2)
  - INTRAOCULAR PRESSURE DECREASED [None]
  - INCORRECT DRUG ADMINISTRATION DURATION [None]
